FAERS Safety Report 14045913 (Version 8)
Quarter: 2018Q1

REPORT INFORMATION
  Report Type: Spontaneous
  Country: US (occurrence: US)
  Receive Date: 20171005
  Receipt Date: 20180103
  Transmission Date: 20180508
  Serious: Yes (Death)
  Sender: FDA-Public Use
  Company Number: US-PFIZER INC-2017374655

PATIENT
  Age: 73 Year
  Sex: Female
  Weight: 85 kg

DRUGS (6)
  1. SUTENT [Suspect]
     Active Substance: SUNITINIB MALATE
     Dosage: 37.5 MG, CYCLIC (DAILY FOR 28 DAYS ON / 14 DAYS OFF)
     Route: 048
     Dates: start: 20170917
  2. BABY ASPIRIN [Concomitant]
     Active Substance: ASPIRIN
     Dosage: UNK
  3. NAPROXEN. [Concomitant]
     Active Substance: NAPROXEN
     Dosage: UNK, AS NEEDED
  4. SIMVASTATIN. [Concomitant]
     Active Substance: SIMVASTATIN
     Dosage: UNK
  5. METOPROLOL. [Concomitant]
     Active Substance: METOPROLOL
     Dosage: UNK
  6. SUTENT [Suspect]
     Active Substance: SUNITINIB MALATE
     Indication: METASTATIC RENAL CELL CARCINOMA
     Dosage: UNK
     Dates: start: 20170905

REACTIONS (17)
  - Myocardial infarction [Fatal]
  - Arthralgia [Recovered/Resolved]
  - Oral pain [Unknown]
  - Myalgia [Recovered/Resolved]
  - Influenza [Recovered/Resolved]
  - Decreased appetite [Recovered/Resolved]
  - Hyperaesthesia [Unknown]
  - Pain in extremity [Unknown]
  - Pain [Recovered/Resolved]
  - Musculoskeletal discomfort [Unknown]
  - Insomnia [Recovered/Resolved]
  - Fatigue [Recovered/Resolved]
  - Platelet count decreased [Unknown]
  - Plantar erythema [Recovering/Resolving]
  - Headache [Recovered/Resolved]
  - Dysgeusia [Unknown]
  - Condition aggravated [Unknown]

NARRATIVE: CASE EVENT DATE: 2017
